FAERS Safety Report 8511995 (Version 2)
Quarter: 2013Q3

REPORT INFORMATION
  Report Type: Spontaneous
  Country: US (occurrence: US)
  Receive Date: 20120413
  Receipt Date: 20130903
  Transmission Date: 20140515
  Serious: No
  Sender: FDA-Public Use
  Company Number: US-ASTRAZENECA-2011SE70397

PATIENT
  Age: 51 Year
  Sex: Female
  Weight: 81.6 kg

DRUGS (6)
  1. NEXIUM [Suspect]
     Indication: GASTROOESOPHAGEAL REFLUX DISEASE
     Route: 048
     Dates: start: 2011, end: 20130711
  2. NEXIUM [Suspect]
     Indication: GASTROOESOPHAGEAL REFLUX DISEASE
     Route: 048
  3. LISINOPRIL [Suspect]
     Indication: BLOOD PRESSURE
     Route: 048
     Dates: start: 2009
  4. FLUOXETINE [Concomitant]
     Indication: DEPRESSION
  5. LEVOTHYROXINE [Concomitant]
     Indication: BLOOD CALCIUM INCREASED
  6. FUROSEMIDE [Concomitant]
     Indication: DIURETIC THERAPY

REACTIONS (10)
  - Calcinosis [Unknown]
  - Oedema [Unknown]
  - Dysphagia [Not Recovered/Not Resolved]
  - Odynophagia [Not Recovered/Not Resolved]
  - Dysphonia [Not Recovered/Not Resolved]
  - Weight fluctuation [Unknown]
  - Gastrooesophageal reflux disease [Unknown]
  - Local swelling [Unknown]
  - Depression [Unknown]
  - Drug dose omission [Unknown]
